FAERS Safety Report 14227938 (Version 5)
Quarter: 2019Q4

REPORT INFORMATION
  Report Type: Spontaneous
  Country: US (occurrence: US)
  Receive Date: 20171127
  Receipt Date: 20191024
  Transmission Date: 20200122
  Serious: Yes (Hospitalization)
  Sender: FDA-Public Use
  Company Number: US-BIOMARINAP-US-2017-116169

PATIENT

DRUGS (1)
  1. VIMIZIM [Suspect]
     Active Substance: ELOSULFASE ALFA
     Indication: MUCOPOLYSACCHARIDOSIS IV
     Dosage: 90 MG, QW
     Route: 065

REACTIONS (5)
  - Product dose omission [Unknown]
  - Pain [Unknown]
  - Somnolence [Unknown]
  - Ankle operation [Unknown]
  - Knee operation [Unknown]
